FAERS Safety Report 9296508 (Version 2)
Quarter: 2013Q3

REPORT INFORMATION
  Report Type: Report from Study
  Country: US (occurrence: US)
  Receive Date: 20130517
  Receipt Date: 20130717
  Transmission Date: 20140515
  Serious: Yes (Other)
  Sender: FDA-Public Use
  Company Number: US-BRISTOL-MYERS SQUIBB COMPANY-18875815

PATIENT
  Age: 64 Year
  Sex: Female

DRUGS (1)
  1. YERVOY [Suspect]
     Indication: MALIGNANT MELANOMA STAGE IV
     Dates: start: 201304

REACTIONS (5)
  - Blindness unilateral [Unknown]
  - Rash [Unknown]
  - Fatigue [Unknown]
  - Pruritus [Unknown]
  - Constipation [Unknown]
